FAERS Safety Report 11638011 (Version 1)
Quarter: 2015Q4

REPORT INFORMATION
  Report Type: Spontaneous
  Country: US (occurrence: US)
  Receive Date: 20151016
  Receipt Date: 20151016
  Transmission Date: 20160304
  Serious: No
  Sender: FDA-Public Use
  Company Number: US-INDIVIOR-RB-082245-2015

PATIENT
  Age: 40 Year
  Sex: Male

DRUGS (2)
  1. SUBOXONE [Suspect]
     Active Substance: BUPRENORPHINE HYDROCHLORIDE\NALOXONE HYDROCHLORIDE
     Indication: DRUG DEPENDENCE
     Dosage: TAKEN LESS THAN 16 MG/DAILY AT VARIOUS DOSES
     Route: 060
     Dates: start: 201412, end: 201502
  2. SUBOXONE [Suspect]
     Active Substance: BUPRENORPHINE HYDROCHLORIDE\NALOXONE HYDROCHLORIDE
     Indication: NEURALGIA
     Dosage: TAKEN LESS THAN 16 MG/DAILY AT VARIOUS DOSES
     Route: 060
     Dates: start: 201502, end: 201508

REACTIONS (5)
  - Neuralgia [Not Recovered/Not Resolved]
  - Therapeutic product ineffective [Not Recovered/Not Resolved]
  - Product preparation error [Recovered/Resolved]
  - Intentional underdose [Recovered/Resolved]
  - Therapeutic product ineffective for unapproved indication [Recovered/Resolved]

NARRATIVE: CASE EVENT DATE: 201412
